FAERS Safety Report 6865715-4 (Version None)
Quarter: 2010Q3

REPORT INFORMATION
  Report Type: 
  Country: None (occurrence: None)
  Receive Date: 20100721
  Receipt Date: 20080429
  Transmission Date: 20110219
  Serious: Yes (Other)
  Sender: FDA-Public Use
  Company Number: US-PFIZER INC-2008038306

PATIENT
  Sex: Female

DRUGS (1)
  1. CHANTIX [Suspect]
     Indication: SMOKING CESSATION THERAPY
     Dates: start: 20080422

REACTIONS (7)
  - ARTHRALGIA [None]
  - ASTHENIA [None]
  - FATIGUE [None]
  - FEELING COLD [None]
  - HEADACHE [None]
  - MYALGIA [None]
  - SOMNOLENCE [None]
